FAERS Safety Report 17185020 (Version 1)
Quarter: 2019Q4

REPORT INFORMATION
  Report Type: Spontaneous
  Country: US (occurrence: US)
  Receive Date: 20191128
  Receipt Date: 20191128
  Transmission Date: 20200122
  Serious: Yes (Hospitalization)
  Sender: FDA-Public Use
  Company Number: None

PATIENT
  Sex: Female
  Weight: 96.1 kg

DRUGS (5)
  1. VINCRISTINE [Concomitant]
     Active Substance: VINCRISTINE
  2. PREDNISONE. [Concomitant]
     Active Substance: PREDNISONE
  3. CYTARABINE. [Suspect]
     Active Substance: CYTARABINE
  4. DAUNORUBICIN [Suspect]
     Active Substance: DAUNORUBICIN
  5. METHOTREXATE. [Concomitant]
     Active Substance: METHOTREXATE

REACTIONS (7)
  - Fatigue [None]
  - Asthenia [None]
  - Tachycardia [None]
  - Device related infection [None]
  - Hypotension [None]
  - Streptococcus test positive [None]
  - Performance status decreased [None]

NARRATIVE: CASE EVENT DATE: 20180203
